FAERS Safety Report 8278766-2 (Version None)
Quarter: 2012Q2

REPORT INFORMATION
  Report Type: 
  Country: None (occurrence: None)
  Receive Date: 20120412
  Receipt Date: 20120301
  Transmission Date: 20120825
  Serious: No
  Sender: FDA-Public Use
  Company Number: US-ASTRAZENECA-2012SE14673

PATIENT
  Age: 69 Year
  Sex: Female
  Weight: 73.9 kg

DRUGS (8)
  1. EVOXAC [Concomitant]
     Indication: DRY EYE
  2. ATORVASTATIN [Concomitant]
     Indication: BLOOD PRESSURE
  3. OMEGA 3 VITAMINS [Concomitant]
     Indication: DRY EYE
  4. CARAFATE [Concomitant]
     Indication: GASTRITIS
  5. EVOXAC [Concomitant]
     Indication: DRY MOUTH
  6. NEXIUM [Suspect]
     Indication: GASTROOESOPHAGEAL REFLUX DISEASE
     Route: 048
     Dates: start: 20020101
  7. SYNTHROID [Concomitant]
     Indication: THYROID DISORDER
  8. LORAZEPAM [Concomitant]
     Indication: RESTLESSNESS

REACTIONS (9)
  - BLOOD CHOLESTEROL ABNORMAL [None]
  - EMOTIONAL DISORDER [None]
  - GASTRITIS [None]
  - SJOGREN'S SYNDROME [None]
  - GASTROOESOPHAGEAL REFLUX DISEASE [None]
  - ARTHRITIS [None]
  - GASTRIC DISORDER [None]
  - DRUG DOSE OMISSION [None]
  - THYROID DISORDER [None]
